FAERS Safety Report 18368407 (Version 2)
Quarter: 2020Q4

REPORT INFORMATION
  Report Type: Spontaneous
  Country: US (occurrence: US)
  Receive Date: 20201009
  Receipt Date: 20201012
  Transmission Date: 20210114
  Serious: Yes (Other)
  Sender: FDA-Public Use
  Company Number: US-CELGENEUS-USA-20201000998

PATIENT
  Age: 60 Year
  Sex: Male

DRUGS (13)
  1. REVLIMID [Suspect]
     Active Substance: LENALIDOMIDE
     Dosage: 15 MILLIGRAM
     Route: 048
     Dates: start: 202008
  2. REVLIMID [Suspect]
     Active Substance: LENALIDOMIDE
     Dosage: 5-20 MILLIGRAM
     Route: 048
     Dates: start: 20190301
  3. REVLIMID [Suspect]
     Active Substance: LENALIDOMIDE
     Dosage: 15-5 MILLIGRAM
     Route: 048
     Dates: start: 201911
  4. REVLIMID [Suspect]
     Active Substance: LENALIDOMIDE
     Dosage: 20 MILLIGRAM
     Route: 048
     Dates: start: 202009
  5. REVLIMID [Suspect]
     Active Substance: LENALIDOMIDE
     Indication: PLASMA CELL MYELOMA
     Dosage: 5 MILLIGRAM
     Route: 048
     Dates: start: 201404
  6. REVLIMID [Suspect]
     Active Substance: LENALIDOMIDE
     Indication: CENTRAL NERVOUS SYSTEM LYMPHOMA
     Dosage: 10 MILLIGRAM
     Route: 048
     Dates: start: 201409
  7. REVLIMID [Suspect]
     Active Substance: LENALIDOMIDE
     Dosage: 15-17.5 MILLIGRAM
     Route: 048
     Dates: start: 201708
  8. REVLIMID [Suspect]
     Active Substance: LENALIDOMIDE
     Dosage: 5-20 MILLIGRAM
     Route: 048
     Dates: start: 201712
  9. REVLIMID [Suspect]
     Active Substance: LENALIDOMIDE
     Dosage: 15-20 MILLIGRAM
     Route: 048
     Dates: start: 201603
  10. REVLIMID [Suspect]
     Active Substance: LENALIDOMIDE
     Dosage: 15-5 MILLIGRAM
     Route: 048
     Dates: start: 201906
  11. REVLIMID [Suspect]
     Active Substance: LENALIDOMIDE
     Dosage: 20-5 MILLIGRAM
     Route: 048
     Dates: start: 201909
  12. REVLIMID [Suspect]
     Active Substance: LENALIDOMIDE
     Dosage: 20-5 MILLIGRAM
     Route: 048
     Dates: start: 202002
  13. REVLIMID [Suspect]
     Active Substance: LENALIDOMIDE
     Dosage: 17.5-5 MILLIGRAM
     Route: 048
     Dates: start: 201807

REACTIONS (2)
  - Dementia with Lewy bodies [Not Recovered/Not Resolved]
  - Cataract [Not Recovered/Not Resolved]

NARRATIVE: CASE EVENT DATE: 20200801
